FAERS Safety Report 9799595 (Version 2)
Quarter: 2014Q1

REPORT INFORMATION
  Report Type: Spontaneous
  Country: US (occurrence: US)
  Receive Date: 20140106
  Receipt Date: 20140106
  Transmission Date: 20141002
  Serious: No
  Sender: FDA-Public Use
  Company Number: US-GILEAD-2010-0031348

PATIENT
  Age: 86 Year
  Sex: Male
  Weight: 68.95 kg

DRUGS (12)
  1. LETAIRIS [Suspect]
     Indication: PULMONARY ARTERIAL HYPERTENSION
     Route: 048
     Dates: start: 20100804
  2. SIMVASTATIN [Concomitant]
  3. METOPROLOL TARTRATE [Concomitant]
  4. ASPIRIN [Concomitant]
  5. LEVOTHYROXIN [Concomitant]
  6. MULTIVITAMINS [Concomitant]
  7. CALCIUM 500 [Concomitant]
  8. VITAMIN C [Concomitant]
  9. VITAMIN D3 [Concomitant]
  10. VITAMIN B12 [Concomitant]
  11. TAURINE [Concomitant]
  12. COQ10 [Concomitant]

REACTIONS (2)
  - Vision blurred [Unknown]
  - Dizziness [Unknown]
